FAERS Safety Report 25207343 (Version 1)
Quarter: 2025Q2

REPORT INFORMATION
  Report Type: Report from Study
  Country: US (occurrence: US)
  Receive Date: 20250417
  Receipt Date: 20250417
  Transmission Date: 20250716
  Serious: Yes (Other)
  Sender: ABBVIE
  Company Number: US-ABBVIE-6227878

PATIENT
  Sex: Female

DRUGS (1)
  1. SKYRIZI [Suspect]
     Active Substance: RISANKIZUMAB-RZAA
     Indication: Psoriatic arthropathy
     Route: 058
     Dates: start: 20230404

REACTIONS (6)
  - Breast cancer female [Unknown]
  - Fatigue [Recovered/Resolved]
  - Arthralgia [Unknown]
  - Back pain [Unknown]
  - Injection site bruising [Unknown]
  - Dysstasia [Unknown]
